FAERS Safety Report 6221427-1 (Version None)
Quarter: 2009Q2

REPORT INFORMATION
  Report Type: 
  Country: None (occurrence: None)
  Receive Date: 20090608
  Receipt Date: 20090603
  Transmission Date: 20091009
  Serious: Yes (Life-Threatening)
  Sender: FDA-Public Use
  Company Number: 2009SP012191

PATIENT
  Age: 58 Year
  Sex: 0
  Weight: 68 kg

DRUGS (3)
  1. NOXAFIL [Suspect]
     Indication: DRUG USE FOR UNKNOWN INDICATION
     Dosage: 2.5 ML; PO
     Route: 048
     Dates: start: 20071201, end: 20080501
  2. AMBISOME [Concomitant]
  3. PREDNISOLONE [Concomitant]

REACTIONS (1)
  - APLASIA PURE RED CELL [None]
